FAERS Safety Report 8379942-0 (Version None)
Quarter: 2012Q2

REPORT INFORMATION
  Report Type: 
  Country: None (occurrence: None)
  Receive Date: 20120523
  Receipt Date: 20120514
  Transmission Date: 20120825
  Serious: Yes (Hospitalization)
  Sender: FDA-Public Use
  Company Number: FR-SANOFI-AVENTIS-2012SA034143

PATIENT
  Age: 66 Year
  Sex: Male

DRUGS (3)
  1. TAXOTERE [Suspect]
     Route: 042
     Dates: start: 20111230, end: 20111230
  2. TAXOTERE [Suspect]
     Route: 042
     Dates: start: 20120120, end: 20120120
  3. TAXOTERE [Suspect]
     Indication: BREAST CANCER
     Route: 042
     Dates: start: 20111209, end: 20111209

REACTIONS (4)
  - VENOUS INSUFFICIENCY [None]
  - ERYTHEMA [None]
  - NEUROPATHY PERIPHERAL [None]
  - ONYCHOLYSIS [None]
